FAERS Safety Report 5717925-7 (Version None)
Quarter: 2008Q2

REPORT INFORMATION
  Report Type: 
  Country: None (occurrence: None)
  Receive Date: 20080425
  Receipt Date: 20080422
  Transmission Date: 20081010
  Serious: Yes (Hospitalization, Other)
  Sender: FDA-Public Use
  Company Number: TW-ASTRAZENECA-2008AP02971

PATIENT
  Age: 48 Year
  Sex: Female

DRUGS (18)
  1. IRESSA [Suspect]
     Indication: NON-SMALL CELL LUNG CANCER
     Route: 048
     Dates: start: 20060810, end: 20060920
  2. IRESSA [Suspect]
     Route: 048
     Dates: start: 20071113, end: 20080101
  3. IRESSA [Suspect]
     Route: 048
     Dates: start: 20080123, end: 20080326
  4. GEMZAR [Concomitant]
     Dates: start: 20070305
  5. GEMZAR [Concomitant]
     Dates: start: 20070312
  6. GEMZAR [Concomitant]
     Dosage: GIVEN WITH CISPLATIN
     Dates: start: 20070409, end: 20070410
  7. GEMZAR [Concomitant]
     Dates: start: 20070423
  8. GEMZAR [Concomitant]
     Dates: start: 20070507
  9. GEMZAR [Concomitant]
     Dosage: GIVEN WITH CISPLATIN
     Dates: start: 20070518, end: 20070519
  10. GEMZAR [Concomitant]
     Dates: start: 20070625
  11. GEMZAR [Concomitant]
     Dosage: GIVEN WITH CISPLATIN
     Dates: start: 20070824, end: 20070825
  12. CISPLATIN [Concomitant]
     Dates: start: 20070409, end: 20070410
  13. CISPLATIN [Concomitant]
     Dates: start: 20070518, end: 20070519
  14. CISPLATIN [Concomitant]
     Dates: start: 20070824, end: 20070825
  15. TAXOL [Concomitant]
     Dosage: SECOND LINE TREATMENT
     Dates: start: 20071002
  16. TAXOL [Concomitant]
     Dosage: SECOND LINE TREATMENT
     Dates: start: 20071023
  17. TAXOL [Concomitant]
     Dosage: SECOND LINE TREATMENT
     Dates: start: 20071030
  18. TARCEVA [Concomitant]
     Dates: start: 20060920, end: 20061012

REACTIONS (2)
  - LEUKOPENIA [None]
  - THROMBOCYTOPENIA [None]
